FAERS Safety Report 6549607-6 (Version None)
Quarter: 2010Q1

REPORT INFORMATION
  Report Type: 
  Country: None (occurrence: None)
  Receive Date: 20100125
  Receipt Date: 20100115
  Transmission Date: 20100710
  Serious: Yes (Hospitalization)
  Sender: FDA-Public Use
  Company Number: JP-ROCHE-595829

PATIENT
  Sex: Female
  Weight: 46 kg

DRUGS (20)
  1. BEVACIZUMAB [Suspect]
     Indication: BREAST CANCER RECURRENT
     Dosage: ROUTE: INTRAVENOUS (NOT OTHERWISE SPECIFIED).
     Route: 042
     Dates: start: 20071015, end: 20080526
  2. BEVACIZUMAB [Suspect]
     Route: 042
     Dates: start: 20080609, end: 20090831
  3. PACLITAXEL [Suspect]
     Indication: BREAST CANCER RECURRENT
     Dosage: ROUTE: INTRAVENOUS (NOT OTHERWISE SPECIFIED); NOTE: THREE ONE YAS
     Route: 042
     Dates: start: 20071015, end: 20090805
  4. ZOLEDRONIC ACID [Suspect]
     Indication: METASTASES TO BONE
     Dosage: ROUTE: INJECTABLE (NOT OTHERWISE SPECIFIED)
     Route: 050
     Dates: start: 20050620, end: 20080825
  5. DEXAMETHASONE [Suspect]
     Indication: BREAST CANCER RECURRENT
     Route: 041
     Dates: start: 20071015
  6. DIPHENHYDRAMINE [Suspect]
     Indication: BREAST CANCER RECURRENT
     Dosage: DRUG: RESTAMIN KOWA(DIPHENHYDRAMINE HYDROCHLORIDE).
     Route: 048
     Dates: start: 20071015
  7. ZANTAC [Concomitant]
     Route: 041
     Dates: start: 20071015
  8. GRANISETRON HYDROCHLORIDE [Concomitant]
     Route: 041
     Dates: start: 20071015
  9. KENALOG [Concomitant]
     Indication: STOMATITIS
     Dosage: NOTE: SINGLE USE AND PROPER QUANTITIY
     Route: 061
     Dates: start: 20071211
  10. AMLODIPINE [Concomitant]
     Dosage: NOTE: ADMINISTERING IN MORNING.
     Route: 048
     Dates: start: 20071226
  11. LENDORMIN [Concomitant]
     Dosage: SINGLE USE (BEFORE IT SLEEPS); DRUG REPORTED AS LENDORMIN D
     Route: 048
  12. KETOPROFEN [Concomitant]
     Dosage: DOSE FORM: TAPE; SINGLE USE; DRUG REPORTED AS MILTAX
     Route: 061
  13. MUCOSTA [Concomitant]
     Route: 048
     Dates: start: 20080407
  14. TERRA-CORTRIL [Concomitant]
     Dosage: DRUG REPORTED AS TERRA CORTRIL; PROPER QUANTITY
     Route: 061
     Dates: start: 20080303
  15. MAGMITT [Concomitant]
     Dosage: NOTE: EVERY.. AFTER THE MEAL.
     Route: 048
     Dates: start: 20080122
  16. GLYCYRON [Concomitant]
     Route: 048
  17. RESTAMIN [Concomitant]
     Dosage: DRUG REPORTED AS RESTAMIN KOWA
     Route: 048
     Dates: start: 20071015
  18. DEXART [Concomitant]
     Dosage: ROUTE: INTRAVENOUS (NOT OTHERWISE SPECIFIED)
     Route: 042
     Dates: start: 20071015, end: 20071015
  19. DEXART [Concomitant]
     Route: 042
     Dates: start: 20071029
  20. KYTRIL [Concomitant]
     Dosage: ROUTE: INTRAVENOUS (NOT OTHERWISE SPECIFEID)
     Route: 042
     Dates: start: 20071015

REACTIONS (1)
  - OSTEITIS [None]
